FAERS Safety Report 7137340-1 (Version None)
Quarter: 2010Q4

REPORT INFORMATION
  Report Type: 
  Country: None (occurrence: None)
  Receive Date: 20101206
  Receipt Date: 20080605
  Transmission Date: 20110411
  Serious: Yes (Death, Hospitalization)
  Sender: FDA-Public Use
  Company Number: US-ACTELION-A-US2008-19592

PATIENT

DRUGS (3)
  1. TRACLEER [Suspect]
     Indication: PULMONARY ARTERIAL HYPERTENSION
     Route: 048
     Dates: start: 20041201
  2. REVATIO [Concomitant]
  3. REMODULIN [Concomitant]

REACTIONS (3)
  - DEATH [None]
  - DIZZINESS [None]
  - DYSPNOEA [None]
